FAERS Safety Report 25346088 (Version 1)
Quarter: 2025Q2

REPORT INFORMATION
  Report Type: Report from Study
  Country: US (occurrence: US)
  Receive Date: 20250522
  Receipt Date: 20250522
  Transmission Date: 20250716
  Serious: Yes (Other)
  Sender: SUNOVION
  Company Number: US-SMPA-2025SPA006224

PATIENT

DRUGS (3)
  1. ORGOVYX [Suspect]
     Active Substance: RELUGOLIX
     Indication: Prostate cancer
     Route: 048
  2. ORGOVYX [Suspect]
     Active Substance: RELUGOLIX
     Dosage: 120 MG, QD
     Route: 048
     Dates: start: 20250107
  3. ZEPBOUND [Concomitant]
     Active Substance: TIRZEPATIDE
     Indication: Prostate cancer
     Dosage: 2.5 MG, QW
     Route: 058

REACTIONS (5)
  - Psoriatic arthropathy [Unknown]
  - Liver function test increased [Unknown]
  - Depression [Unknown]
  - Arthralgia [Unknown]
  - Fatigue [Unknown]
